FAERS Safety Report 12091112 (Version 1)
Quarter: 2016Q1

REPORT INFORMATION
  Report Type: Not Available
  Country: JP (occurrence: JP)
  Receive Date: 20160218
  Receipt Date: 20160218
  Transmission Date: 20160526
  Serious: Yes (Other)
  Sender: FDA-Public Use
  Company Number: US-AKORN-24656

PATIENT
  Age: 2 Year
  Sex: Female

DRUGS (1)
  1. VALPROIC ACID ORAL SOLUTION, USP 250MG/5ML [Suspect]
     Active Substance: VALPROIC ACID

REACTIONS (3)
  - Fanconi syndrome [Unknown]
  - Osteomyelitis [Unknown]
  - Pathological fracture [Unknown]

NARRATIVE: CASE EVENT DATE: 20150415
